FAERS Safety Report 10102347 (Version 2)
Quarter: 2014Q4

REPORT INFORMATION
  Report Type: Spontaneous
  Country: IT (occurrence: IT)
  Receive Date: 20140424
  Receipt Date: 20141113
  Transmission Date: 20150528
  Serious: Yes (Life-Threatening)
  Sender: FDA-Public Use
  Company Number: IT-PFIZER INC-2014113433

PATIENT
  Age: 53 Year
  Sex: Female

DRUGS (4)
  1. LIMICAN [Concomitant]
     Dosage: 50 MG, UNK
     Route: 048
  2. EPIRUBICIN HCL [Suspect]
     Active Substance: EPIRUBICIN HYDROCHLORIDE
     Indication: BREAST CANCER
     Dosage: 90 MG (TOTAL DOSAGE)
     Route: 042
     Dates: start: 20140401
  3. ENDOXAN-BAXTER [Suspect]
     Active Substance: CYCLOPHOSPHAMIDE
     Dosage: 900 MG, UNK
     Route: 042
     Dates: start: 20140401
  4. SOLDESAM [Concomitant]
     Active Substance: DEXAMETHASONE
     Dosage: 30 GTT, UNK
     Route: 048

REACTIONS (2)
  - Loss of consciousness [Recovered/Resolved]
  - Epilepsy [Recovered/Resolved]

NARRATIVE: CASE EVENT DATE: 20140404
